FAERS Safety Report 6802489-7 (Version None)
Quarter: 2010Q2

REPORT INFORMATION
  Report Type: 
  Country: None (occurrence: None)
  Receive Date: 20100628
  Receipt Date: 20100621
  Transmission Date: 20101027
  Serious: Yes (Other)
  Sender: FDA-Public Use
  Company Number: BR-BAYER-201014735LA

PATIENT
  Age: 37 Year
  Sex: Female

DRUGS (5)
  1. YAZ [Suspect]
     Indication: CONTRACEPTION
     Dosage: SHOULD HAVE STARTED ON 05-APR-2010, BUT TOOK A PILL TWO DAYS AFTER
     Route: 048
     Dates: start: 20070101
  2. PURAN T4 [Concomitant]
     Indication: DRUG USE FOR UNKNOWN INDICATION
     Route: 048
  3. SIMVASTATIN [Concomitant]
     Indication: DRUG USE FOR UNKNOWN INDICATION
     Route: 048
  4. FENERGAN [Concomitant]
     Indication: HYPERSENSITIVITY
     Dosage: 3 INJECTIONS
     Route: 030
     Dates: start: 20100401, end: 20100401
  5. UTROGESTAN [Concomitant]
     Indication: DRUG USE FOR UNKNOWN INDICATION
     Route: 067

REACTIONS (4)
  - ANTEPARTUM HAEMORRHAGE [None]
  - DIARRHOEA [None]
  - HYPERTENSION [None]
  - PREGNANCY ON ORAL CONTRACEPTIVE [None]
